FAERS Safety Report 4808029-6 (Version None)
Quarter: 2005Q4

REPORT INFORMATION
  Report Type: 
  Country: None (occurrence: None)
  Receive Date: 20051021
  Receipt Date: 20051011
  Transmission Date: 20060501
  Serious: Yes (Other)
  Sender: FDA-Public Use
  Company Number: COV2-2005-00259

PATIENT
  Sex: Female
  Weight: 67.5 kg

DRUGS (9)
  1. FOSRENOL [Suspect]
     Indication: HYPERPHOSPHATAEMIA
     Dosage: 500 MG, 3X/DAY:  TID, ORAL
     Route: 048
     Dates: start: 20050523, end: 20050426
  2. TIAZAC [Concomitant]
  3. NEURONTIN [Concomitant]
  4. CATAPRES-TTS-2 (CLONIDINE) PATCH [Concomitant]
  5. SYNTHROID [Concomitant]
  6. IBUPROFEN [Concomitant]
  7. EPOGEN [Concomitant]
  8. HECTOROL [Concomitant]
  9. REGLAN /USA/ [Concomitant]

REACTIONS (1)
  - DIARRHOEA [None]
